FAERS Safety Report 21142239 (Version 2)
Quarter: 2022Q3

REPORT INFORMATION
  Report Type: Report from Study
  Country: US (occurrence: US)
  Receive Date: 20220728
  Receipt Date: 20220801
  Transmission Date: 20221026
  Serious: Yes (Death, Hospitalization, Other)
  Sender: FDA-Public Use
  Company Number: US-ABBVIE-22K-163-4484622-00

PATIENT
  Sex: Male

DRUGS (7)
  1. SYNTHROID [Suspect]
     Active Substance: LEVOTHYROXINE SODIUM
     Indication: Hypothyroidism
     Route: 048
     Dates: end: 202207
  2. PROLIA [Concomitant]
     Active Substance: DENOSUMAB
     Indication: Osteoporosis
  3. LOSARTAN [Concomitant]
     Active Substance: LOSARTAN
     Indication: Product used for unknown indication
  4. ASPIRIN [Concomitant]
     Active Substance: ASPIRIN
     Indication: Product used for unknown indication
  5. ABIRATERONE [Concomitant]
     Active Substance: ABIRATERONE
     Indication: Product used for unknown indication
  6. TIMOLOL [Concomitant]
     Active Substance: TIMOLOL
     Indication: Product used for unknown indication
  7. METRONIDAZOLE [Concomitant]
     Active Substance: METRONIDAZOLE
     Indication: Product used for unknown indication

REACTIONS (19)
  - Death [Fatal]
  - Prostate cancer [Unknown]
  - Lung neoplasm malignant [Unknown]
  - Coronary arterial stent insertion [Unknown]
  - Chronic obstructive pulmonary disease [Unknown]
  - Gait inability [Unknown]
  - Spinal stenosis [Unknown]
  - Electrolyte imbalance [Unknown]
  - Pain [Unknown]
  - Swelling [Unknown]
  - Adverse reaction [Unknown]
  - Delirium [Unknown]
  - Peripheral swelling [Unknown]
  - Dementia [Unknown]
  - Blood calcium increased [Unknown]
  - Memory impairment [Unknown]
  - Emphysema [Unknown]
  - Cardiovascular disorder [Unknown]
  - Lung disorder [Unknown]

NARRATIVE: CASE EVENT DATE: 20220101
